FAERS Safety Report 19741664 (Version 4)
Quarter: 2022Q4

REPORT INFORMATION
  Report Type: Spontaneous
  Country: JP (occurrence: None)
  Receive Date: 20210824
  Receipt Date: 20221102
  Transmission Date: 20230113
  Serious: Yes (Hospitalization)
  Sender: FDA-Public Use
  Company Number: 2021A320949

PATIENT
  Age: 55 Year
  Sex: Male

DRUGS (20)
  1. IMFINZI [Suspect]
     Active Substance: DURVALUMAB
     Indication: Small cell lung cancer
     Route: 041
     Dates: start: 20210209, end: 20210209
  2. CISPLATIN [Suspect]
     Active Substance: CISPLATIN
     Indication: Small cell lung cancer
     Dosage: UNKNOWN DOSE AND FREQUENCY
     Route: 065
     Dates: start: 20210209, end: 20210209
  3. ETOPOSIDE [Concomitant]
     Active Substance: ETOPOSIDE
     Indication: Small cell lung cancer
     Dosage: DOSE UNKNOWN, ON DAY 1, 2 AND 3 OF EACH CYCLE
     Route: 065
     Dates: start: 20210209, end: 20210211
  4. PITAVASTATIN CALCIUM [Concomitant]
     Active Substance: PITAVASTATIN CALCIUM
     Indication: Small cell lung cancer
     Dosage: UNKNOWN DOSE AND FREQUENCY
     Route: 065
     Dates: end: 20210728
  5. EPLERENONE [Concomitant]
     Active Substance: EPLERENONE
     Indication: Hypertension
     Dosage: UNKNOWN DOSE AND FREQUENCY
     Route: 065
     Dates: end: 20210728
  6. FEBUXOSTAT [Concomitant]
     Active Substance: FEBUXOSTAT
     Indication: Hyperuricaemia
     Dosage: UNKNOWN DOSE AND FREQUENCY
     Route: 065
     Dates: end: 20210728
  7. FUROSEMIDE [Concomitant]
     Active Substance: FUROSEMIDE
     Indication: Atrial fibrillation
     Dosage: UNKNOWN DOSE AND FREQUENCY
     Route: 065
     Dates: end: 20210804
  8. TENELIGLIPTIN [Concomitant]
     Active Substance: TENELIGLIPTIN
     Indication: Diabetes mellitus
     Dosage: UNKNOWN DOSE AND FREQUENCY
     Route: 065
     Dates: end: 20210728
  9. DABIGATRAN ETEXILATE MESYLATE [Concomitant]
     Active Substance: DABIGATRAN ETEXILATE MESYLATE
     Indication: Atrial fibrillation
     Dosage: UNKNOWN DOSE AND FREQUENCY
     Route: 048
     Dates: end: 20210520
  10. BEPOTASTINE BESYLATE [Concomitant]
     Active Substance: BEPOTASTINE BESYLATE
     Indication: Seasonal allergy
     Dosage: UNKNOWN DOSE AND FREQUENCY
     Route: 048
     Dates: end: 20210312
  11. OXYCODONE HYDROCHLORIDE [Concomitant]
     Active Substance: OXYCODONE HYDROCHLORIDE
     Dosage: UNKNOWN DOSE AND FREQUENCY
     Route: 048
     Dates: start: 20210119, end: 20210804
  12. OXINORM [Concomitant]
     Dosage: UNKNOWN DOSE AND FREQUENCY2.5MG AS REQUIRED
     Route: 048
     Dates: start: 20210119, end: 20210804
  13. LOXOPROFEN SODIUM [Concomitant]
     Active Substance: LOXOPROFEN SODIUM
     Route: 048
     Dates: start: 20210119, end: 20210728
  14. NOVAMIN [Concomitant]
     Indication: Prophylaxis of nausea and vomiting
     Route: 048
     Dates: start: 20210119, end: 20210325
  15. MAGNESIUM OXIDE [Concomitant]
     Active Substance: MAGNESIUM OXIDE
     Indication: Constipation
     Dosage: 330 MG - 660 MG/DOSE
     Route: 048
     Dates: start: 20210202, end: 20210804
  16. APREPITANT [Concomitant]
     Active Substance: APREPITANT
     Indication: Prophylaxis of nausea and vomiting
     Dosage: UNKNOWN DOSE AND FREQUENCY
     Route: 048
     Dates: start: 20210209, end: 20210209
  17. DEXAMETHASONE SODIUM PHOSPHATE [Concomitant]
     Active Substance: DEXAMETHASONE SODIUM PHOSPHATE
     Dosage: 9.9 MG - 13.2 MG/DOSE
     Route: 042
     Dates: start: 20210209, end: 20210212
  18. ALOXI [Concomitant]
     Active Substance: PALONOSETRON HYDROCHLORIDE
     Dosage: 9.9 MG - 13.2 MG/DOSE
     Route: 042
     Dates: start: 20210209, end: 20210209
  19. MANNITOL-S [Concomitant]
     Route: 042
     Dates: start: 20210209, end: 20210209
  20. MAGNESIUM SULFATE [Concomitant]
     Active Substance: MAGNESIUM SULFATE
     Route: 042
     Dates: start: 20210209, end: 20210209

REACTIONS (4)
  - Neutrophil count decreased [Recovered/Resolved]
  - Immune thrombocytopenia [Recovered/Resolved]
  - Cellulitis [Recovered/Resolved]
  - Adrenal insufficiency [Not Recovered/Not Resolved]

NARRATIVE: CASE EVENT DATE: 20210225
